FAERS Safety Report 24818773 (Version 1)
Quarter: 2025Q1

REPORT INFORMATION
  Report Type: Spontaneous
  Country: US (occurrence: US)
  Receive Date: 20250108
  Receipt Date: 20250108
  Transmission Date: 20250409
  Serious: Yes (Hospitalization, Other)
  Sender: BAYER HEALTHCARE LLC
  Company Number: US-MLMSERVICE-20241226-PI324709-00033-1

PATIENT
  Age: 27 Year
  Sex: Female

DRUGS (1)
  1. ASPIRIN [Suspect]
     Active Substance: ASPIRIN
     Indication: Analgesic therapy
     Dosage: TOOK MORE THAN 3 GRAMS OF ASPIRIN (500 MG TABLETS) DAILY

REACTIONS (4)
  - Drug-induced liver injury [Unknown]
  - Hepatic failure [Unknown]
  - Renal tubular necrosis [Unknown]
  - Overdose [Unknown]
